FAERS Safety Report 5627360-8 (Version None)
Quarter: 2008Q1

REPORT INFORMATION
  Report Type: 
  Country: None (occurrence: None)
  Receive Date: 20080131
  Receipt Date: 20071120
  Transmission Date: 20080703
  Serious: No
  Sender: FDA-Public Use
  Company Number: 163-21880-07101774

PATIENT
  Age: 64 Year
  Sex: Female

DRUGS (8)
  1. REVLIMID [Suspect]
     Indication: MULTIPLE MYELOMA
     Dosage: 25 MG, DAILY FOR 21 DAYS, ORAL
     Route: 048
     Dates: start: 20070924
  2. DEXAMETHASON (DEXAMETHASONE) (4 MILLIGRAM, TABLETS) [Concomitant]
  3. ZETIA [Concomitant]
  4. VITAMIN B COMPLEX WITH VITAMIN C(VITAMIN B-COMPLEX WITH VITAMIN C) [Concomitant]
  5. CARDIZEM XL (DILTIAZEM HYDROCHLORIDE) [Concomitant]
  6. ATIVAN [Concomitant]
  7. ASPIRIN [Concomitant]
  8. PREVACID [Concomitant]

REACTIONS (7)
  - ANXIETY [None]
  - COUGH [None]
  - MUSCLE SPASMS [None]
  - NASAL CONGESTION [None]
  - NERVOUSNESS [None]
  - ORAL CANDIDIASIS [None]
  - PYREXIA [None]
